FAERS Safety Report 9969870 (Version 1)
Quarter: 2014Q1

REPORT INFORMATION
  Report Type: Spontaneous
  Country: CA (occurrence: CA)
  Receive Date: 20140306
  Receipt Date: 20140306
  Transmission Date: 20141002
  Serious: Yes (Death, Other)
  Sender: FDA-Public Use
  Company Number: CA-JNJFOC-20140300002

PATIENT
  Age: 79 Year
  Sex: Female
  Weight: 67 kg

DRUGS (12)
  1. XARELTO [Suspect]
     Indication: PRODUCT USED FOR UNKNOWN INDICATION
     Route: 048
  2. IBUPROFEN [Suspect]
     Indication: PRODUCT USED FOR UNKNOWN INDICATION
     Dosage: DURATION OF DRUG ADMINISTRATION 6 DAYS
     Route: 065
  3. IBUPROFEN [Suspect]
     Indication: PRODUCT USED FOR UNKNOWN INDICATION
     Route: 065
  4. ATENOLOL [Concomitant]
     Route: 065
  5. FISH OIL [Concomitant]
     Route: 065
  6. METHOTREXATE [Concomitant]
     Route: 065
  7. FRAGMIN [Concomitant]
     Route: 042
  8. TRIAMTERENE [Concomitant]
     Route: 065
  9. SIMVASTATIN [Concomitant]
     Route: 065
  10. IRON [Concomitant]
     Route: 065
  11. FOLIC ACID [Concomitant]
     Route: 065
  12. VITAMIN D [Concomitant]
     Route: 065

REACTIONS (5)
  - Unresponsive to stimuli [Fatal]
  - Haematemesis [Unknown]
  - Haemoglobin decreased [Unknown]
  - Melaena [Unknown]
  - Syncope [Unknown]
